FAERS Safety Report 7940783-7 (Version None)
Quarter: 2011Q4

REPORT INFORMATION
  Report Type: 
  Country: None (occurrence: None)
  Receive Date: 20111128
  Receipt Date: 20111122
  Transmission Date: 20120403
  Serious: Yes (Other)
  Sender: FDA-Public Use
  Company Number: US-PFIZER INC-2011263138

PATIENT
  Sex: Female
  Weight: 54.422 kg

DRUGS (6)
  1. LYRICA [Suspect]
     Indication: NEURALGIA
     Dosage: 50 MG, 3X/DAY
     Route: 048
     Dates: start: 20111004, end: 20111010
  2. DIAZEPAM [Concomitant]
     Dosage: UNK
  3. FLEXERIL [Concomitant]
     Dosage: UNK
  4. XANAX [Concomitant]
     Dosage: UNK
  5. VICODIN ES [Concomitant]
     Dosage: UNK
  6. NAPRELAN [Concomitant]
     Dosage: UNK

REACTIONS (5)
  - TREMOR [None]
  - FEELING ABNORMAL [None]
  - DIZZINESS [None]
  - VISION BLURRED [None]
  - MENTAL IMPAIRMENT [None]
